FAERS Safety Report 8623283 (Version 3)
Quarter: 2012Q4

REPORT INFORMATION
  Report Type: 
  Country: GB (occurrence: GB)
  Receive Date: 20120620
  Receipt Date: 20121001
  Transmission Date: 20130627
  Serious: Yes (Other)
  Sender: FDA-Public Use
  Company Number: PHFR2012GB003481

PATIENT
  Sex: Male
  Weight: 83 kg

DRUGS (9)
  1. IMATINIB [Suspect]
     Dosage: 100 mg, daily
     Dates: start: 201003, end: 201003
  2. IMATINIB [Suspect]
     Dosage: 400 mg, UNK
  3. IMATINIB [Suspect]
     Dosage: 300 mg, UNK
  4. IMATINIB [Suspect]
     Dosage: 200 mg, UNK
     Dates: start: 201205
  5. RAMIPRIL [Concomitant]
     Dosage: 2.5 mg, UNK
  6. ATORVASTATIN [Concomitant]
     Dosage: 40 mg, UNK
  7. CLOPIDOGREL [Concomitant]
     Dosage: 75 mg, UNK
  8. BISOPROLOL [Concomitant]
     Dosage: 2.5 mg, UNK
  9. FUROSEMIDE [Concomitant]
     Dosage: 80 mg, BID

REACTIONS (5)
  - Electrocardiogram QT prolonged [Not Recovered/Not Resolved]
  - Pleural fibrosis [Not Recovered/Not Resolved]
  - Drug intolerance [Recovered/Resolved]
  - Dyspnoea exertional [Recovered/Resolved]
  - Fluid retention [Recovered/Resolved]
